FAERS Safety Report 14954157 (Version 1)
Quarter: 2018Q2

REPORT INFORMATION
  Report Type: Report from Study
  Country: IT (occurrence: IT)
  Receive Date: 20180530
  Receipt Date: 20180530
  Transmission Date: 20180711
  Serious: Yes (Life-Threatening, Hospitalization, Other)
  Sender: FDA-Public Use
  Company Number: IT-BRISTOL-MYERS SQUIBB COMPANY-BMS-2018-048942

PATIENT
  Age: 77 Year
  Sex: Female
  Weight: 59.2 kg

DRUGS (2)
  1. NIVOLUMAB [Suspect]
     Active Substance: NIVOLUMAB
     Indication: SQUAMOUS CELL CARCINOMA OF HEAD AND NECK
     Dosage: 240 MG, UNK
     Route: 042
     Dates: start: 20180409, end: 20180508
  2. FENTANIL [Concomitant]
     Active Substance: FENTANYL
     Indication: TUMOUR PAIN
     Dosage: 1 DF, UNK
     Route: 062
     Dates: start: 20180522

REACTIONS (2)
  - Hypokalaemia [Unknown]
  - Hypercalcaemia of malignancy [Recovering/Resolving]

NARRATIVE: CASE EVENT DATE: 20180523
